FAERS Safety Report 19083450 (Version 1)
Quarter: 2021Q2

REPORT INFORMATION
  Report Type: Spontaneous
  Country: RU (occurrence: RU)
  Receive Date: 20210401
  Receipt Date: 20210401
  Transmission Date: 20210717
  Serious: Yes (Other)
  Sender: FDA-Public Use
  Company Number: RU-ASTRAZENECA-2021A229051

PATIENT
  Age: 50 Year
  Sex: Male
  Weight: 94 kg

DRUGS (3)
  1. EKVATOR [Concomitant]
  2. JARDIANCE [Concomitant]
     Active Substance: EMPAGLIFLOZIN
  3. FORXIGA [Suspect]
     Active Substance: DAPAGLIFLOZIN
     Indication: TYPE 2 DIABETES MELLITUS
     Route: 048

REACTIONS (1)
  - Cystitis haemorrhagic [Recovered/Resolved]
